FAERS Safety Report 11623362 (Version 1)
Quarter: 2015Q4

REPORT INFORMATION
  Report Type: Spontaneous
  Country: US (occurrence: US)
  Receive Date: 20151013
  Receipt Date: 20151013
  Transmission Date: 20160304
  Serious: No
  Sender: FDA-Public Use
  Company Number: US-JNJFOC-20150121567

PATIENT
  Age: 90 Year
  Sex: Female
  Weight: 78.02 kg

DRUGS (1)
  1. TYLENOL EXTRA STRENGTH [Suspect]
     Active Substance: ACETAMINOPHEN
     Indication: ARTHRALGIA
     Dosage: FOR 20 DAYS
     Route: 048
     Dates: start: 20150105

REACTIONS (3)
  - Product lot number issue [Unknown]
  - Incorrect drug administration duration [Unknown]
  - Product outer packaging issue [Unknown]
